FAERS Safety Report 9924960 (Version 1)
Quarter: 2014Q1

REPORT INFORMATION
  Report Type: Spontaneous
  Country: US (occurrence: None)
  Receive Date: 20140224
  Receipt Date: 20140224
  Transmission Date: 20141002
  Serious: Yes (Other)
  Sender: FDA-Public Use
  Company Number: None

PATIENT
  Age: 6 Year
  Sex: Male
  Weight: 21.32 kg

DRUGS (2)
  1. DEXTROAMPHETAMINE-AMPHETAMINE XR [Suspect]
     Indication: ATTENTION DEFICIT/HYPERACTIVITY DISORDER
     Dosage: 1  QD  ORALLY
     Route: 048
     Dates: start: 20130702, end: 20131011
  2. DEXTROAMPHETAMINE-AMPHETAMINE XR [Suspect]
     Indication: PSYCHOMOTOR HYPERACTIVITY
     Dosage: 1  QD  ORALLY
     Route: 048
     Dates: start: 20130702, end: 20131011

REACTIONS (3)
  - Tic [None]
  - Drug ineffective [None]
  - Abnormal behaviour [None]
